FAERS Safety Report 16861846 (Version 1)
Quarter: 2019Q4

REPORT INFORMATION
  Report Type: Spontaneous
  Country: US (occurrence: US)
  Receive Date: 20190927
  Receipt Date: 20190927
  Transmission Date: 20200122
  Serious: No
  Sender: FDA-Public Use
  Company Number: None

PATIENT
  Age: 72 Year
  Sex: Male
  Weight: 58.5 kg

DRUGS (6)
  1. DICYCLOMINE [Concomitant]
     Active Substance: DICYCLOMINE HYDROCHLORIDE
  2. VITAMIN B COMPLEX [Concomitant]
     Active Substance: CYANOCOBALAMIN\DEXPANTHENOL\NIACINAMIDE\PYRIDOXINE HYDROCHLORIDE\RIBOFLAVIN 5^-PHOSPHATE SODIUM\THIAMINE HYDROCHLORIDE\VITAMIN B COMPLEX
  3. PREVACID [Concomitant]
     Active Substance: LANSOPRAZOLE
  4. ZANTAC [Concomitant]
     Active Substance: RANITIDINE HYDROCHLORIDE
  5. ELIGARD [Suspect]
     Active Substance: LEUPROLIDE ACETATE
     Indication: PROSTATE CANCER STAGE IV
     Dosage: ?          QUANTITY:1 INJECTION(S);OTHER FREQUENCY:EVERY 3 MONTHS;?
     Route: 030
  6. KLONOPIN [Concomitant]
     Active Substance: CLONAZEPAM

REACTIONS (3)
  - Skin ulcer [None]
  - Pain [None]
  - Visual impairment [None]

NARRATIVE: CASE EVENT DATE: 20160715
